FAERS Safety Report 20874373 (Version 1)
Quarter: 2022Q2

REPORT INFORMATION
  Report Type: Spontaneous
  Country: US (occurrence: None)
  Receive Date: 20220525
  Receipt Date: 20220525
  Transmission Date: 20220721
  Serious: Yes (Life-Threatening, Hospitalization)
  Sender: FDA-Public Use
  Company Number: None

PATIENT
  Age: 29 Month
  Sex: Male

DRUGS (1)
  1. VIGABATRIN [Suspect]
     Active Substance: VIGABATRIN
     Indication: Status epilepticus
     Dosage: FREQUENCY : TWICE A DAY;?
     Route: 048
     Dates: start: 20220425

REACTIONS (2)
  - Toxicity to various agents [None]
  - Cerebral disorder [None]

NARRATIVE: CASE EVENT DATE: 20220401
